FAERS Safety Report 7963411-3 (Version None)
Quarter: 2011Q4

REPORT INFORMATION
  Report Type: 
  Country: None (occurrence: None)
  Receive Date: 20111205
  Receipt Date: 20111121
  Transmission Date: 20120403
  Serious: Yes (Hospitalization, Congenital Anomaly)
  Sender: FDA-Public Use
  Company Number: 1000025785

PATIENT
  Sex: Male
  Weight: 3.65 kg

DRUGS (8)
  1. ACETAMINOPHEN [Suspect]
     Dosage: 500 MG, AS NEEDED, TRANSPLACENTAL
     Route: 064
  2. EMBOLEX [Suspect]
     Dosage: 3000 IU (3000 IU, 1 IN 1 D), TRANSPLACENTAL
     Route: 064
     Dates: start: 20100920, end: 20110511
  3. ESCITALOPRAM OXALATE [Suspect]
     Dosage: 15 MG (15 MG, 1 IN 1 D), TRANSPLACENTAL, 8 MG (TEMPORARILY REDUCED DOSAGE) (8 MG, 1 IN 1 D), TRANSPL
     Route: 064
     Dates: start: 20100821, end: 20110511
  4. ESCITALOPRAM OXALATE [Suspect]
     Dosage: 15 MG (15 MG, 1 IN 1 D), TRANSPLACENTAL, 8 MG (TEMPORARILY REDUCED DOSAGE) (8 MG, 1 IN 1 D), TRANSPL
     Route: 064
     Dates: start: 20100821
  5. COTRIM [Suspect]
     Dosage: TRANSPLACENTAL
     Route: 064
     Dates: start: 20110415, end: 20110418
  6. ESCITALOPRAM OXALATE [Suspect]
     Dosage: 15 MG (15 MG, 1 IN 1 D), TRANSPLACENTAL
     Route: 064
     Dates: end: 20110511
  7. AMOXICILLIN [Suspect]
     Dosage: TRANSPLACENTAL
     Route: 064
     Dates: start: 20110419
  8. FEMIBION (FOLIC ACID) (FOLIC ACID) [Concomitant]

REACTIONS (3)
  - CONGENITAL HYDRONEPHROSIS [None]
  - URETHRAL VALVES [None]
  - MATERNAL DRUGS AFFECTING FOETUS [None]
